FAERS Safety Report 26103970 (Version 2)
Quarter: 2025Q4

REPORT INFORMATION
  Report Type: Spontaneous
  Country: EU (occurrence: EU)
  Receive Date: 20251129
  Receipt Date: 20251215
  Transmission Date: 20260119
  Serious: Yes (Other)
  Sender: ANI
  Company Number: EU-ANIPHARMA-031264

PATIENT
  Age: 22 Year
  Sex: Male
  Weight: 75 kg

DRUGS (10)
  1. CANDESARTAN CILEXETIL [Suspect]
     Active Substance: CANDESARTAN CILEXETIL
     Indication: Blood pressure abnormal
     Route: 065
     Dates: start: 20230925
  2. PENTASA [Concomitant]
     Active Substance: MESALAMINE
     Indication: Product used for unknown indication
     Dates: start: 20221129
  3. METHOTREXATE [Concomitant]
     Active Substance: METHOTREXATE
     Indication: Product used for unknown indication
     Dates: start: 202501
  4. VEDOLIZUMAB [Concomitant]
     Active Substance: VEDOLIZUMAB
     Indication: Colitis ulcerative
     Dates: start: 20250320, end: 20250930
  5. AMLODIPINE BESYLATE [Concomitant]
     Active Substance: AMLODIPINE BESYLATE
     Indication: Blood pressure abnormal
     Dates: start: 20230815
  6. INFLIXIMAB [Concomitant]
     Active Substance: INFLIXIMAB
     Indication: Product used for unknown indication
  7. VEDOLIZUMAB [Concomitant]
     Active Substance: VEDOLIZUMAB
     Indication: Inflammatory bowel disease
     Dates: start: 20250320, end: 20250930
  8. INFLIXIMAB [Concomitant]
     Active Substance: INFLIXIMAB
     Indication: Product used for unknown indication
     Dates: start: 20250117
  9. INFLIXIMAB [Concomitant]
     Active Substance: INFLIXIMAB
     Indication: Product used for unknown indication
  10. INFLIXIMAB [Concomitant]
     Active Substance: INFLIXIMAB
     Indication: Product used for unknown indication
     Dates: start: 20250103

REACTIONS (18)
  - General physical health deterioration [Unknown]
  - Oropharyngeal discomfort [Unknown]
  - Blood pressure fluctuation [Unknown]
  - Abdominal pain upper [Unknown]
  - Brain fog [Unknown]
  - Hyperhidrosis [Unknown]
  - Rhinorrhoea [Unknown]
  - Paraesthesia [Unknown]
  - Vertigo [Unknown]
  - Nervousness [Unknown]
  - Fatigue [Unknown]
  - Cough [Unknown]
  - Rhinitis [Unknown]
  - Headache [Unknown]
  - Back pain [Unknown]
  - Cytomegalovirus infection reactivation [Recovered/Resolved]
  - Dizziness [Unknown]
  - Respiratory tract infection [Unknown]

NARRATIVE: CASE EVENT DATE: 20250101
